FAERS Safety Report 5391239-X (Version None)
Quarter: 2007Q3

REPORT INFORMATION
  Report Type: 
  Country: None (occurrence: None)
  Receive Date: 20070717
  Receipt Date: 20070706
  Transmission Date: 20080115
  Serious: Yes (Other)
  Sender: FDA-Public Use
  Company Number: 2007326042

PATIENT
  Sex: Female

DRUGS (1)
  1. ROGAINE [Suspect]
     Indication: ALOPECIA
     Dosage: REGULAR DOSAGE,TOPICAL
     Route: 061
     Dates: start: 20070630, end: 20070704

REACTIONS (2)
  - DRUG INEFFECTIVE [None]
  - SWELLING [None]
